FAERS Safety Report 21473707 (Version 1)
Quarter: 2022Q4

REPORT INFORMATION
  Report Type: Spontaneous
  Country: US (occurrence: US)
  Receive Date: 20221018
  Receipt Date: 20221018
  Transmission Date: 20230112
  Serious: Yes (Hospitalization, Other)
  Sender: FDA-Public Use
  Company Number: US-JUBILANT CADISTA PHARMACEUTICALS-2022JUB00365

PATIENT
  Age: 66 Year
  Sex: Male

DRUGS (2)
  1. VALACYCLOVIR HYDROCHLORIDE [Suspect]
     Active Substance: VALACYCLOVIR HYDROCHLORIDE
     Indication: Herpes zoster
     Dosage: 1 G, EVERY 8 HOURS, PRESCRIBED VALACYCLOVIR AT SIX-TIMES THE RECOMMENDED DOSE
  2. HYDROCODONE 5 mg ;PARACETAMOL 325 mg [Concomitant]
     Indication: Herpes zoster
     Dosage: EVERY 6 HOURS, AS NEEDED

REACTIONS (2)
  - Neurotoxicity [Recovering/Resolving]
  - Incorrect dose administered [Recovered/Resolved]
